FAERS Safety Report 25416323 (Version 1)
Quarter: 2025Q2

REPORT INFORMATION
  Report Type: Spontaneous
  Country: NL (occurrence: NL)
  Receive Date: 20250610
  Receipt Date: 20250610
  Transmission Date: 20250717
  Serious: Yes (Hospitalization)
  Sender: ACCORD
  Company Number: None

PATIENT
  Age: 60 Year
  Sex: Female
  Weight: 62.3 kg

DRUGS (13)
  1. CARBOPLATIN [Suspect]
     Active Substance: CARBOPLATIN
     Indication: Lung cancer metastatic
     Dates: start: 20250310, end: 20250423
  2. PEMETREXED [Suspect]
     Active Substance: PEMETREXED
     Indication: Lung cancer metastatic
     Dates: start: 20250310, end: 20250423
  3. PEMBROLIZUMAB [Suspect]
     Active Substance: PEMBROLIZUMAB
     Indication: Lung cancer metastatic
     Dates: start: 20250310, end: 20250423
  4. MAGNESIUM HYDROXIDE [Concomitant]
     Active Substance: MAGNESIUM HYDROXIDE
  5. PANTOPRAZOLE [Concomitant]
     Active Substance: PANTOPRAZOLE
  6. INSULIN LISPRO [Concomitant]
     Active Substance: INSULIN LISPRO
  7. INSULIN DEGLUDEC [Concomitant]
     Active Substance: INSULIN DEGLUDEC
  8. ASPIRIN [Concomitant]
     Active Substance: ASPIRIN
  9. HYDROXOCOBALAMIN HYDROCHLORIDE [Concomitant]
     Active Substance: HYDROXOCOBALAMIN HYDROCHLORIDE
  10. FOLIC ACID [Concomitant]
     Active Substance: FOLIC ACID
  11. ATORVASTATIN [Concomitant]
     Active Substance: ATORVASTATIN
  12. GLUCAGON [Concomitant]
     Active Substance: GLUCAGON
  13. LEVETIRACETAM [Concomitant]
     Active Substance: LEVETIRACETAM

REACTIONS (1)
  - Renal failure [Recovering/Resolving]
